FAERS Safety Report 9814914 (Version 2)
Quarter: 2014Q1

REPORT INFORMATION
  Report Type: Report from Study
  Country: NO (occurrence: NO)
  Receive Date: 20140113
  Receipt Date: 20140306
  Transmission Date: 20141002
  Serious: Yes (Hospitalization)
  Sender: FDA-Public Use
  Company Number: NO-RB-062619-14

PATIENT
  Age: 42 Year
  Sex: Male

DRUGS (2)
  1. BUPRENOTEX [Suspect]
     Indication: DRUG DEPENDENCE
     Dosage: PATIENT ON BUPRENOTEX FOR 5 YEARS AT THE TIME QUESTIONNAIRE WAS COMPLETED
     Route: 065
  2. SSRI [Concomitant]
     Indication: DEPRESSION
     Dosage: DOSING DETAILS UNKNOWN
     Route: 065

REACTIONS (8)
  - Sepsis [Unknown]
  - Drug abuse [Unknown]
  - Drug diversion [Unknown]
  - Intentional drug misuse [Unknown]
  - Depression [Unknown]
  - Anxiety [Unknown]
  - Drug withdrawal syndrome [Unknown]
  - Fear [Unknown]
